FAERS Safety Report 19689846 (Version 2)
Quarter: 2022Q1

REPORT INFORMATION
  Report Type: Spontaneous
  Country: FR (occurrence: FR)
  Receive Date: 20210811
  Receipt Date: 20220204
  Transmission Date: 20220423
  Serious: Yes (Other)
  Sender: FDA-Public Use
  Company Number: FR-AVERITAS PHARMA, INC.-2021-268351

PATIENT
  Age: 60 Year
  Sex: Male

DRUGS (4)
  1. QUTENZA [Suspect]
     Active Substance: CAPSAICIN
     Indication: Radicular pain
     Dosage: UNK
     Route: 003
     Dates: start: 20210514
  2. QUTENZA [Suspect]
     Active Substance: CAPSAICIN
     Dosage: UNK
     Route: 003
     Dates: start: 20210719
  3. AMITRIPTYLINE HYDROCHLORIDE [Concomitant]
     Active Substance: AMITRIPTYLINE HYDROCHLORIDE
     Indication: Product used for unknown indication
     Dosage: 50 MILLIGRAM
     Route: 065
  4. ACETAMINOPHEN\TRAMADOL [Concomitant]
     Active Substance: ACETAMINOPHEN\TRAMADOL
     Indication: Product used for unknown indication
     Dosage: UNK
     Route: 065

REACTIONS (5)
  - Pain [Recovered/Resolved]
  - Application site burn [Recovered/Resolved]
  - Application site vesicles [Recovered/Resolved]
  - Application site erythema [Recovered/Resolved]
  - Application site swelling [Recovered/Resolved]

NARRATIVE: CASE EVENT DATE: 20210719
